FAERS Safety Report 11222867 (Version 1)
Quarter: 2015Q2

REPORT INFORMATION
  Report Type: Report from Study
  Country: PE (occurrence: PE)
  Receive Date: 20150626
  Receipt Date: 20150626
  Transmission Date: 20150821
  Serious: Yes (Hospitalization, Other)
  Sender: FDA-Public Use
  Company Number: PE-BRISTOL-MYERS SQUIBB COMPANY-BMS-2015-041233

PATIENT
  Age: 63 Year
  Sex: Female

DRUGS (1)
  1. METFORMIN HYDROCHLORIDE. [Suspect]
     Active Substance: METFORMIN HYDROCHLORIDE
     Indication: THYROID DISORDER
     Dosage: 1 DF:850
     Route: 065
     Dates: start: 20040915

REACTIONS (4)
  - Sciatica [Not Recovered/Not Resolved]
  - Fall [Recovered/Resolved]
  - Spinal operation [Not Recovered/Not Resolved]
  - Off label use [Unknown]

NARRATIVE: CASE EVENT DATE: 201501
